APPROVED DRUG PRODUCT: HYDROCODONE BITARTRATE AND ACETAMINOPHEN
Active Ingredient: ACETAMINOPHEN; HYDROCODONE BITARTRATE
Strength: 500MG;7.5MG
Dosage Form/Route: TABLET;ORAL
Application: A089699 | Product #001
Applicant: MIKART LLC
Approved: Aug 25, 1989 | RLD: No | RS: No | Type: DISCN